FAERS Safety Report 25428636 (Version 3)
Quarter: 2025Q3

REPORT INFORMATION
  Report Type: Report from Study
  Country: AR (occurrence: AR)
  Receive Date: 20250612
  Receipt Date: 20250701
  Transmission Date: 20251021
  Serious: No
  Sender: NOVARTIS
  Company Number: AR-002147023-NVSC2025AR092383

PATIENT
  Sex: Female

DRUGS (5)
  1. KISQALI [Suspect]
     Active Substance: RIBOCICLIB SUCCINATE
     Indication: Breast cancer metastatic
     Dosage: 3 DOSAGE FORM (600MG), QD (200 MILLIGRAM/BOX X63)
     Route: 048
     Dates: start: 20250203, end: 202503
  2. KISQALI [Suspect]
     Active Substance: RIBOCICLIB SUCCINATE
     Indication: Hormone receptor positive breast cancer
  3. LETROZOLE [Suspect]
     Active Substance: LETROZOLE
     Indication: Hormone receptor positive breast cancer
     Route: 065
     Dates: start: 202501
  4. LETROZOLE [Suspect]
     Active Substance: LETROZOLE
     Indication: Breast cancer metastatic
  5. LEUPROLIDE ACETATE [Suspect]
     Active Substance: LEUPROLIDE ACETATE
     Indication: Hormone receptor positive breast cancer
     Dosage: 1 DOSAGE FORM, QMO, AMPOULE
     Route: 065
     Dates: start: 202501, end: 202504

REACTIONS (3)
  - Memory impairment [Unknown]
  - Cognitive disorder [Unknown]
  - Procedural pain [Unknown]
